FAERS Safety Report 14441147 (Version 1)
Quarter: 2018Q1

REPORT INFORMATION
  Report Type: Spontaneous
  Country: US (occurrence: US)
  Receive Date: 20180125
  Receipt Date: 20180125
  Transmission Date: 20180509
  Serious: Yes (Other)
  Sender: FDA-Public Use
  Company Number: US-ASTRAZENECA-2018SE08001

PATIENT
  Sex: Female
  Weight: 64 kg

DRUGS (2)
  1. CRESTOR [Suspect]
     Active Substance: ROSUVASTATIN CALCIUM
     Indication: BLOOD CHOLESTEROL ABNORMAL
     Dosage: GENERIC
     Route: 065
     Dates: start: 201712
  2. CRESTOR [Suspect]
     Active Substance: ROSUVASTATIN CALCIUM
     Indication: BLOOD CHOLESTEROL ABNORMAL
     Route: 048
     Dates: end: 201712

REACTIONS (4)
  - Mental impairment [Recovering/Resolving]
  - Therapy cessation [Unknown]
  - Confusional state [Unknown]
  - Myocardial infarction [Unknown]
